FAERS Safety Report 7206345-4 (Version None)
Quarter: 2011Q1

REPORT INFORMATION
  Report Type: 
  Country: None (occurrence: None)
  Receive Date: 20110103
  Receipt Date: 20110103
  Transmission Date: 20110831
  Serious: Yes (Hospitalization)
  Sender: FDA-Public Use
  Company Number: PHHO2008DE03451

PATIENT
  Sex: Male
  Weight: 70 kg

DRUGS (2)
  1. PLACEBO [Suspect]
     Indication: CARCINOID TUMOUR
     Dosage: PLACEBO
     Route: 048
     Dates: start: 20070808, end: 20080219
  2. SANDOSTATIN LAR [Suspect]
     Indication: CARCINOID TUMOUR
     Dosage: DOUBLE BLIND
     Dates: start: 20070808, end: 20080219

REACTIONS (7)
  - OEDEMA [None]
  - DRUG INEFFECTIVE [None]
  - URINARY TRACT INFECTION [None]
  - NEOPLASM MALIGNANT [None]
  - DIARRHOEA [None]
  - FATIGUE [None]
  - CARCINOID TUMOUR [None]
